FAERS Safety Report 13129349 (Version 1)
Quarter: 2017Q1

REPORT INFORMATION
  Report Type: Spontaneous
  Country: US (occurrence: US)
  Receive Date: 20170118
  Receipt Date: 20170118
  Transmission Date: 20170428
  Serious: Yes (Life-Threatening)
  Sender: FDA-Public Use
  Company Number: None

PATIENT
  Age: 93 Year
  Sex: Male
  Weight: 97.5 kg

DRUGS (2)
  1. MIDAZOLAM [Suspect]
     Active Substance: MIDAZOLAM HYDROCHLORIDE
     Indication: CARDIOVERSION
     Route: 042
     Dates: start: 20161215
  2. FENTANYL 50MCG/ML-2ML VIAL [Suspect]
     Active Substance: FENTANYL
     Indication: CARDIOVERSION
     Route: 042
     Dates: start: 20161215

REACTIONS (1)
  - Bradypnoea [None]

NARRATIVE: CASE EVENT DATE: 20161215
